FAERS Safety Report 8269858-2 (Version None)
Quarter: 2012Q2

REPORT INFORMATION
  Report Type: 
  Country: None (occurrence: None)
  Receive Date: 20120410
  Receipt Date: 20120329
  Transmission Date: 20120825
  Serious: Yes (Other)
  Sender: FDA-Public Use
  Company Number: US-JNJFOC-20120213191

PATIENT
  Sex: Male

DRUGS (10)
  1. METHOTREXATE [Concomitant]
     Indication: PSORIATIC ARTHROPATHY
     Route: 048
     Dates: start: 20010409
  2. REMICADE [Suspect]
     Indication: PSORIATIC ARTHROPATHY
     Route: 042
     Dates: start: 20120215
  3. METHOTREXATE [Concomitant]
     Indication: PSORIASIS
     Route: 048
     Dates: start: 20010409
  4. CHONDROITIN [Concomitant]
  5. LEXAPRO [Concomitant]
  6. OMEPRAZOLE [Concomitant]
     Indication: GASTROOESOPHAGEAL REFLUX DISEASE
  7. GLUCOSAMINE [Concomitant]
  8. REMICADE [Suspect]
     Dosage: TOTAL DOSE=700 MG; APPROXIMATE TOTAL NUMBER OF INFUSIONS TO DATE=16
     Route: 042
     Dates: start: 20091124
  9. FOLIC ACID [Concomitant]
  10. CLINORIL [Concomitant]
     Indication: ARTHRITIS

REACTIONS (1)
  - SQUAMOUS CELL CARCINOMA OF SKIN [None]
